FAERS Safety Report 4879056-8 (Version None)
Quarter: 2005Q4

REPORT INFORMATION
  Report Type: 
  Country: None (occurrence: None)
  Receive Date: 20051209
  Receipt Date: 20050826
  Transmission Date: 20060501
  Serious: Yes (Hospitalization, Other)
  Sender: FDA-Public Use
  Company Number: USA-2005-0019320

PATIENT
  Age: 74 Year
  Sex: Male
  Weight: 107 kg

DRUGS (7)
  1. OXYCONTIN [Suspect]
     Indication: PAIN
     Dosage: 40 MG, BID
     Dates: start: 20050307, end: 20050307
  2. ALTACE [Concomitant]
  3. METFORMIN HCL [Concomitant]
  4. IBUPROFEN [Concomitant]
  5. VICODIN [Concomitant]
  6. PHENERGAN [Concomitant]
  7. VYTORIN [Concomitant]

REACTIONS (5)
  - CONVULSION [None]
  - DRUG INEFFECTIVE [None]
  - DYSPNOEA [None]
  - FEELING ABNORMAL [None]
  - MUSCLE TIGHTNESS [None]
